FAERS Safety Report 4766983-5 (Version None)
Quarter: 2005Q3

REPORT INFORMATION
  Report Type: 
  Country: None (occurrence: None)
  Receive Date: 20050908
  Receipt Date: 20050823
  Transmission Date: 20060218
  Serious: Yes (Hospitalization)
  Sender: FDA-Public Use
  Company Number: 200507639

PATIENT
  Sex: Female

DRUGS (3)
  1. BOTOX [Suspect]
     Indication: TORTICOLLIS
     Dates: start: 19950101
  2. BOTOX [Suspect]
     Indication: TORTICOLLIS
     Dates: start: 20020422
  3. BOTOX [Suspect]
     Indication: TORTICOLLIS
     Dates: start: 20050423

REACTIONS (28)
  - BACK PAIN [None]
  - BURNING SENSATION [None]
  - CHEST PAIN [None]
  - COLON POLYPECTOMY [None]
  - DIZZINESS [None]
  - DRUG EFFECT DECREASED [None]
  - ENURESIS [None]
  - FALL [None]
  - GAIT DISTURBANCE [None]
  - GINGIVITIS [None]
  - HAEMORRHOIDS [None]
  - HEADACHE [None]
  - HYPERHIDROSIS [None]
  - INTESTINAL FUNCTIONAL DISORDER [None]
  - INTESTINAL PROLAPSE [None]
  - LIGAMENT INJURY [None]
  - MUSCLE RUPTURE [None]
  - MUSCLE SPASMS [None]
  - MUSCULAR WEAKNESS [None]
  - MUSCULOSKELETAL STIFFNESS [None]
  - MYALGIA [None]
  - PAIN [None]
  - PAIN IN EXTREMITY [None]
  - PERIODONTITIS [None]
  - SPEECH DISORDER [None]
  - TONGUE PARALYSIS [None]
  - TREMOR [None]
  - VISUAL DISTURBANCE [None]
